FAERS Safety Report 7524523-1 (Version None)
Quarter: 2011Q2

REPORT INFORMATION
  Report Type: 
  Country: None (occurrence: None)
  Receive Date: 20110606
  Receipt Date: 20110401
  Transmission Date: 20111010
  Serious: Yes (Hospitalization)
  Sender: FDA-Public Use
  Company Number: US-BAYER-201015514NA

PATIENT
  Age: 18 Year
  Sex: Female
  Weight: 100 kg

DRUGS (1)
  1. YAZ [Suspect]
     Indication: CONTRACEPTION
     Dosage: UNK UNK, UNK
     Route: 048
     Dates: start: 20070301, end: 20100301

REACTIONS (11)
  - CHEST PAIN [None]
  - CHOLECYSTITIS [None]
  - BILE DUCT STONE [None]
  - CHOLELITHIASIS [None]
  - NAUSEA [None]
  - ABDOMINAL PAIN UPPER [None]
  - ABDOMINAL DISCOMFORT [None]
  - DIARRHOEA [None]
  - SCAR [None]
  - VOMITING [None]
  - BACK PAIN [None]
